FAERS Safety Report 22068524 (Version 5)
Quarter: 2024Q1

REPORT INFORMATION
  Report Type: Spontaneous
  Country: JP (occurrence: JP)
  Receive Date: 20230307
  Receipt Date: 20240215
  Transmission Date: 20240410
  Serious: Yes (Hospitalization, Other)
  Sender: FDA-Public Use
  Company Number: JP-ONO-2023JP000937

PATIENT
  Age: 58 Year
  Sex: Male

DRUGS (4)
  1. OPDIVO [Suspect]
     Active Substance: NIVOLUMAB
     Indication: Transitional cell carcinoma
     Route: 041
     Dates: start: 20220614, end: 20230207
  2. CORTRIL [Concomitant]
     Active Substance: HYDROCORTISONE
     Indication: Product used for unknown indication
     Route: 048
  3. CARBIMAZOLE [Concomitant]
     Active Substance: CARBIMAZOLE
     Indication: Product used for unknown indication
     Route: 048
  4. UNSPECIFIED INGREDIENT [Concomitant]
     Active Substance: UNSPECIFIED INGREDIENT
     Indication: Product used for unknown indication
     Route: 048

REACTIONS (3)
  - Cataract [Recovered/Resolved]
  - Central hypothyroidism [Not Recovered/Not Resolved]
  - Adrenal insufficiency [Not Recovered/Not Resolved]

NARRATIVE: CASE EVENT DATE: 20230309
